FAERS Safety Report 7542050-2 (Version None)
Quarter: 2011Q2

REPORT INFORMATION
  Report Type: 
  Country: None (occurrence: None)
  Receive Date: 20110524
  Receipt Date: 20110311
  Transmission Date: 20111010
  Serious: No
  Sender: FDA-Public Use
  Company Number: 029131

PATIENT
  Sex: Female
  Weight: 70.3 kg

DRUGS (3)
  1. CIMZIA [Suspect]
     Indication: RHEUMATOID ARTHRITIS
     Dosage: (400 MG 1X/2 WEEKS, 0.2.4; BOTH LEGS/ IN MY UPPER THIGHS SUBCUTANEOUS)
     Route: 058
     Dates: start: 20110308
  2. METHOTREXATE [Concomitant]
  3. HYDROXYCHLOROQUINE SULFATE [Concomitant]

REACTIONS (4)
  - LETHARGY [None]
  - SOMNOLENCE [None]
  - BLOOD PRESSURE INCREASED [None]
  - FATIGUE [None]
